FAERS Safety Report 4316926-3 (Version None)
Quarter: 2004Q1

REPORT INFORMATION
  Report Type: 
  Country: None (occurrence: None)
  Receive Date: 20040308
  Receipt Date: 20040224
  Transmission Date: 20041129
  Serious: Yes (Hospitalization)
  Sender: FDA-Public Use
  Company Number: 200410046BBE

PATIENT
  Age: 13 Year
  Sex: Male

DRUGS (1)
  1. KOATE-DVI [Suspect]
     Indication: MUSCLE HAEMORRHAGE
     Dosage: 10 ML, TOTAL DAILY, INTRAVENOUS
     Route: 042
     Dates: start: 20040223

REACTIONS (1)
  - GRAND MAL CONVULSION [None]
